FAERS Safety Report 6497160-8 (Version None)
Quarter: 2009Q4

REPORT INFORMATION
  Report Type: 
  Country: None (occurrence: None)
  Receive Date: 20091215
  Receipt Date: 20090501
  Transmission Date: 20100525
  Serious: No
  Sender: FDA-Public Use
  Company Number: A0781669A

PATIENT
  Age: 63 Year
  Sex: Male

DRUGS (2)
  1. AVODART [Suspect]
     Indication: BENIGN PROSTATIC HYPERPLASIA
     Dosage: 1CAP PER DAY
     Route: 048
     Dates: start: 20080601
  2. SIMVASTATIN [Concomitant]

REACTIONS (5)
  - DRUG ADMINISTRATION ERROR [None]
  - GASTRITIS [None]
  - GLOSSODYNIA [None]
  - MIDDLE INSOMNIA [None]
  - PAIN [None]
